FAERS Safety Report 6758514-5 (Version None)
Quarter: 2010Q2

REPORT INFORMATION
  Report Type: 
  Country: None (occurrence: None)
  Receive Date: 20100607
  Receipt Date: 20100525
  Transmission Date: 20101027
  Serious: Yes (Life-Threatening, Disabling)
  Sender: FDA-Public Use
  Company Number: B0643556A

PATIENT
  Sex: Male
  Weight: 55 kg

DRUGS (9)
  1. ARRANON [Suspect]
     Dosage: 1500MGM2 PER DAY
     Route: 042
     Dates: start: 20090309, end: 20090619
  2. ONCOVIN [Concomitant]
     Indication: NEOPLASM MALIGNANT
     Dates: start: 20090217, end: 20090303
  3. DAUNOMYCIN [Concomitant]
     Indication: NEOPLASM MALIGNANT
     Dates: start: 20090220, end: 20090222
  4. ENDOXAN [Concomitant]
     Indication: NEOPLASM MALIGNANT
     Dates: start: 20090219, end: 20090219
  5. ENDOXAN [Concomitant]
     Dosage: 560MG PER DAY
     Dates: start: 20090330, end: 20090403
  6. ENDOXAN [Concomitant]
     Dosage: 560MG PER DAY
     Dates: start: 20090430, end: 20090504
  7. LEUNASE [Concomitant]
     Indication: NEOPLASM MALIGNANT
     Dates: start: 20090224, end: 20090301
  8. VEPESID [Concomitant]
     Indication: NEOPLASM MALIGNANT
     Dosage: 130MG PER DAY
     Dates: start: 20090330, end: 20090403
  9. VEPESID [Concomitant]
     Dosage: 130MG PER DAY
     Dates: start: 20090430, end: 20090504

REACTIONS (3)
  - ACUTE RESPIRATORY DISTRESS SYNDROME [None]
  - ANAL FISSURE [None]
  - RENAL DISORDER [None]
